FAERS Safety Report 19608946 (Version 1)
Quarter: 2021Q3

REPORT INFORMATION
  Report Type: Spontaneous
  Country: US (occurrence: US)
  Receive Date: 20210723
  Receipt Date: 20210723
  Transmission Date: 20211014
  Serious: No
  Sender: FDA-Public Use
  Company Number: None

PATIENT
  Age: 62 Year
  Sex: Female
  Weight: 87.09 kg

DRUGS (18)
  1. CAPECITABINE 500 MG [Suspect]
     Active Substance: CAPECITABINE
     Dosage: ?          OTHER FREQUENCY:PM;?
     Route: 048
  2. FLUTICASONE. [Concomitant]
     Active Substance: FLUTICASONE
  3. HALOBETASOL [Concomitant]
     Active Substance: HALOBETASOL PROPIONATE
  4. PREDNISONE. [Concomitant]
     Active Substance: PREDNISONE
  5. VITAMIN D3 [Concomitant]
     Active Substance: CHOLECALCIFEROL
  6. CALCIUM CARBONATE. [Concomitant]
     Active Substance: CALCIUM CARBONATE
  7. CAPECITABINE 500 MG [Suspect]
     Active Substance: CAPECITABINE
     Indication: BREAST CANCER
     Dosage: ?          OTHER FREQUENCY:AM;?
     Route: 048
     Dates: start: 20210526
  8. CYCLOBENZAPRINE. [Concomitant]
     Active Substance: CYCLOBENZAPRINE
  9. DULOXETINE. [Concomitant]
     Active Substance: DULOXETINE
  10. ALLEGRA [Concomitant]
     Active Substance: FEXOFENADINE HYDROCHLORIDE
  11. VITAMIN B12 [Concomitant]
     Active Substance: CYANOCOBALAMIN
  12. VALIUM [Concomitant]
     Active Substance: DIAZEPAM
  13. LIDOCAINE. [Concomitant]
     Active Substance: LIDOCAINE
  14. ALPRAZOLAM. [Concomitant]
     Active Substance: ALPRAZOLAM
  15. AZELASTINE. [Concomitant]
     Active Substance: AZELASTINE HYDROCHLORIDE
  16. PROCHLORPERAZINE. [Concomitant]
     Active Substance: PROCHLORPERAZINE
  17. FAMOTODINE [Concomitant]
  18. NORCO [Concomitant]
     Active Substance: ACETAMINOPHEN\HYDROCODONE BITARTRATE

REACTIONS (1)
  - Paraesthesia oral [None]

NARRATIVE: CASE EVENT DATE: 20210723
